FAERS Safety Report 25003369 (Version 1)
Quarter: 2025Q1

REPORT INFORMATION
  Report Type: Spontaneous
  Country: RU (occurrence: RU)
  Receive Date: 20250224
  Receipt Date: 20250224
  Transmission Date: 20250409
  Serious: Yes (Other)
  Sender: SANDOZ
  Company Number: RU-002147023-NVSC2025RU028079

PATIENT
  Age: 64 Year
  Sex: Male
  Weight: 84 kg

DRUGS (10)
  1. ATORVASTATIN [Suspect]
     Active Substance: ATORVASTATIN
     Indication: Myocardial ischaemia
     Dosage: 40 MG, QD
     Route: 048
     Dates: start: 20250129, end: 20250203
  2. DAPAGLIFLOZIN [Suspect]
     Active Substance: DAPAGLIFLOZIN
     Indication: Heart failure with reduced ejection fraction
     Dosage: 10 MG, QD
     Route: 048
     Dates: start: 20250129, end: 20250203
  3. METOPROLOL [Suspect]
     Active Substance: METOPROLOL
     Indication: Myocardial ischaemia
     Dosage: 50 MG, QD, (FILM-COATED TABLETS WITH PROLONGED RELEASE)
     Route: 048
     Dates: start: 20250129, end: 20250203
  4. PANTOPRAZOLE [Suspect]
     Active Substance: PANTOPRAZOLE
     Indication: Product used for unknown indication
     Route: 065
  5. ULTRAVIST [Suspect]
     Active Substance: IOPROMIDE
     Indication: Percutaneous coronary intervention
     Route: 041
     Dates: start: 20250130, end: 20250130
  6. SACUBITRIL\VALSARTAN [Suspect]
     Active Substance: SACUBITRIL\VALSARTAN
     Indication: Heart failure with reduced ejection fraction
     Dosage: 100 MG, BID
     Route: 048
     Dates: start: 20250129, end: 20250203
  7. EGITROMB [Concomitant]
     Indication: Product used for unknown indication
     Route: 048
     Dates: start: 20250129, end: 20250129
  8. EGITROMB [Concomitant]
     Dosage: 75 MG, QD
     Route: 048
     Dates: start: 20250130
  9. TORSEMIDE [Concomitant]
     Active Substance: TORSEMIDE
     Indication: Product used for unknown indication
     Route: 048
     Dates: start: 20250129
  10. SPIRONOLACTONE [Concomitant]
     Active Substance: SPIRONOLACTONE
     Indication: Product used for unknown indication
     Route: 048
     Dates: start: 20250129

REACTIONS (1)
  - Erythema [Not Recovered/Not Resolved]

NARRATIVE: CASE EVENT DATE: 20250202
